FAERS Safety Report 5333200-7 (Version None)
Quarter: 2007Q2

REPORT INFORMATION
  Report Type: 
  Country: None (occurrence: None)
  Receive Date: 20070521
  Receipt Date: 20070521
  Transmission Date: 20071010
  Serious: Yes (Hospitalization)
  Sender: FDA-Public Use
  Company Number: None

PATIENT
  Age: 60 Year
  Sex: Female
  Weight: 57.1532 kg

DRUGS (8)
  1. PHOSPHOSODA UNFLAVORED [Suspect]
     Indication: COLONOSCOPY
     Dosage: 45 ML;X1;PO
     Route: 048
     Dates: start: 20040615
  2. AVALIDE [Concomitant]
  3. ACTONEL [Concomitant]
  4. ASPIRIN [Concomitant]
  5. VITAMIN E [Concomitant]
  6. DEMEROL [Concomitant]
  7. VERSED [Concomitant]
  8. NARCAN [Concomitant]

REACTIONS (14)
  - ABDOMINAL DISCOMFORT [None]
  - ANOREXIA [None]
  - DEHYDRATION [None]
  - DIZZINESS [None]
  - DYSGEUSIA [None]
  - FATIGUE [None]
  - NAUSEA [None]
  - NEPHROLITHIASIS [None]
  - ORAL INTAKE REDUCED [None]
  - PANCREATIC CYST [None]
  - RENAL FAILURE [None]
  - RENAL INJURY [None]
  - VOMITING [None]
  - WEIGHT DECREASED [None]
